FAERS Safety Report 5531866-X (Version None)
Quarter: 2007Q4

REPORT INFORMATION
  Report Type: 
  Country: None (occurrence: None)
  Receive Date: 20071203
  Receipt Date: 20071126
  Transmission Date: 20080405
  Serious: Yes (Hospitalization)
  Sender: FDA-Public Use
  Company Number: DE-ROCHE-527840

PATIENT
  Age: 65 Year
  Sex: Female
  Weight: 80 kg

DRUGS (3)
  1. PEG-INTERFERON ALFA 2A (RO 25-8310) [Suspect]
     Dosage: FREQUENCY ILLEGIBLE. DOSAGE FORM REPORTED AS SYRINGES. LAST DOSE PRIOR TO THE SAE WAS 18 AUG 2006.
     Route: 058
     Dates: start: 20060809
  2. RIBAVIRIN [Suspect]
     Dosage: LATE DOSE PRIOR TO THE SAE WAS 20 AUG 2006.
     Route: 048
     Dates: start: 20060804
  3. AMANTADINE HCL [Suspect]
     Route: 048
     Dates: start: 20060804

REACTIONS (1)
  - VERTIGO [None]
